FAERS Safety Report 6993423-8 (Version None)
Quarter: 2010Q3

REPORT INFORMATION
  Report Type: 
  Country: None (occurrence: None)
  Receive Date: 20100917
  Receipt Date: 20100512
  Transmission Date: 20110219
  Serious: No
  Sender: FDA-Public Use
  Company Number: US-ASTRAZENECA-2010SE21967

PATIENT
  Sex: Male

DRUGS (3)
  1. SEROQUEL XR [Suspect]
     Indication: BIPOLAR I DISORDER
     Route: 048
  2. CELEXA [Concomitant]
  3. ABILIFY [Concomitant]

REACTIONS (4)
  - NERVOUSNESS [None]
  - OEDEMA PERIPHERAL [None]
  - TREMOR [None]
  - WEIGHT INCREASED [None]
